FAERS Safety Report 5445183-X (Version None)
Quarter: 2007Q3

REPORT INFORMATION
  Report Type: 
  Country: None (occurrence: None)
  Receive Date: 20070906
  Receipt Date: 20070829
  Transmission Date: 20080115
  Serious: Yes (Other)
  Sender: FDA-Public Use
  Company Number: JP-PFIZER INC-2007071882

PATIENT
  Age: 48 Year
  Sex: Male

DRUGS (2)
  1. ALPRAZOLAM [Suspect]
     Indication: MENTAL DISORDER
     Route: 048
  2. TOLEDOMIN [Concomitant]
     Route: 048

REACTIONS (5)
  - BLOOD PRESSURE INCREASED [None]
  - DRUG DEPENDENCE [None]
  - OVERDOSE [None]
  - PALPITATIONS [None]
  - TACHYCARDIA [None]
